FAERS Safety Report 5264837-1 (Version None)
Quarter: 2007Q1

REPORT INFORMATION
  Report Type: 
  Country: None (occurrence: None)
  Receive Date: 20070314
  Receipt Date: 20070307
  Transmission Date: 20070707
  Serious: Yes (Other)
  Sender: FDA-Public Use
  Company Number: JP-GLAXOSMITHKLINE-B0451695A

PATIENT
  Sex: Female

DRUGS (2)
  1. PAXIL [Suspect]
     Indication: PANIC DISORDER
     Route: 048
     Dates: start: 20061121, end: 20061218
  2. AMOBAN [Concomitant]
     Route: 048

REACTIONS (5)
  - CONVULSION [None]
  - DRUG WITHDRAWAL SYNDROME [None]
  - DYSURIA [None]
  - FEELING COLD [None]
  - SWEAT GLAND DISORDER [None]
